FAERS Safety Report 4399381-7 (Version None)
Quarter: 2004Q3

REPORT INFORMATION
  Report Type: 
  Country: None (occurrence: None)
  Receive Date: 20040716
  Receipt Date: 20040628
  Transmission Date: 20050211
  Serious: Yes (Other)
  Sender: FDA-Public Use
  Company Number: PHEH2004US06964

PATIENT
  Age: 66 Year
  Sex: Female

DRUGS (10)
  1. GLEEVEC [Suspect]
     Indication: GASTROINTESTINAL STROMAL TUMOUR
     Dosage: 400 MG, QD
     Route: 048
     Dates: start: 20020201
  2. AVANDIA [Concomitant]
  3. LASIX [Concomitant]
  4. IRON [Concomitant]
  5. VITAMIN E [Concomitant]
  6. VITAMIN C [Concomitant]
  7. ALLEGRA [Concomitant]
  8. NASONEX [Concomitant]
  9. COUMADIN [Concomitant]
  10. BENICAR [Concomitant]

REACTIONS (5)
  - ASEPTIC NECROSIS BONE [None]
  - JOINT ARTHROPLASTY [None]
  - OSTEOARTHRITIS [None]
  - POST PROCEDURAL PAIN [None]
  - POSTOPERATIVE INFECTION [None]
